APPROVED DRUG PRODUCT: TELMISARTAN AND HYDROCHLOROTHIAZIDE
Active Ingredient: HYDROCHLOROTHIAZIDE; TELMISARTAN
Strength: 12.5MG;80MG
Dosage Form/Route: TABLET;ORAL
Application: A091351 | Product #002 | TE Code: AB
Applicant: LUPIN LTD
Approved: Aug 7, 2014 | RLD: No | RS: No | Type: RX